FAERS Safety Report 9159249 (Version 1)
Quarter: 2013Q1

REPORT INFORMATION
  Report Type: Spontaneous
  Country: GR (occurrence: None)
  Receive Date: 20130213
  Receipt Date: 20130213
  Transmission Date: 20140127
  Serious: Yes (Hospitalization)
  Sender: FDA-Public Use
  Company Number: EUS-2013-00054

PATIENT
  Age: 4 Month
  Sex: Male

DRUGS (4)
  1. ASPARAGINASE (UNSPECIFIED) (ASPARAGINASE) (UNKNOWN) [Suspect]
     Indication: ACUTE MEGAKARYOCYTIC LEUKAEMIA
  2. VINCRISTINE (VINCRISTINE) (VINCRISTINE) [Concomitant]
     Indication: ACUTE MEGAKARYOCYTIC LEUKAEMIA
  3. DAUNORUBICIN (DAUNORUBICIN) (DAUNORUBICIN) [Concomitant]
     Indication: ACUTE MEGAKARYOCYTIC LEUKAEMIA
  4. PREDNISONE (PREDNISONE) (PRESDNISONE) [Concomitant]
     Indication: ACUTE MEGAKARYOCYTIC LEUKAEMIA

REACTIONS (1)
  - Thrombocytopenia [None]
